FAERS Safety Report 7565338-8 (Version None)
Quarter: 2011Q2

REPORT INFORMATION
  Report Type: 
  Country: None (occurrence: None)
  Receive Date: 20110623
  Receipt Date: 20110621
  Transmission Date: 20111010
  Serious: Yes (Other)
  Sender: FDA-Public Use
  Company Number: FR-BIOGENIDEC-2011BI020562

PATIENT
  Age: 58 Year
  Sex: Male

DRUGS (4)
  1. PRAVASTATIN [Concomitant]
     Indication: DYSLIPIDAEMIA
  2. AVONEX [Suspect]
     Indication: MULTIPLE SCLEROSIS
     Route: 030
     Dates: start: 20080801
  3. PIOGLITAZONE HYDROCHLORIDE/METFORMIN HYDROCHLORIDE [Concomitant]
     Indication: DIABETES MELLITUS
  4. DIAMICRON [Concomitant]
     Indication: DIABETES MELLITUS

REACTIONS (1)
  - INTESTINAL ADENOCARCINOMA [None]
